FAERS Safety Report 21694182 (Version 5)
Quarter: 2023Q1

REPORT INFORMATION
  Report Type: Spontaneous
  Country: PL (occurrence: PL)
  Receive Date: 20221207
  Receipt Date: 20230208
  Transmission Date: 20230418
  Serious: Yes (Hospitalization, Other)
  Sender: FDA-Public Use
  Company Number: PL-TEVA-2022-PL-2829797

PATIENT
  Age: 91 Year
  Sex: Female

DRUGS (18)
  1. VALSARTAN [Interacting]
     Active Substance: VALSARTAN
     Indication: Cardiac failure
     Dosage: 26 MG, QD
     Route: 065
     Dates: start: 202112
  2. BISOPROLOL FUMARATE [Interacting]
     Active Substance: BISOPROLOL FUMARATE
     Indication: Cardiac failure
     Dosage: 2.5 MG, QD
     Route: 065
     Dates: start: 202112
  3. TORSEMIDE [Suspect]
     Active Substance: TORSEMIDE
     Indication: Myocardial infarction
     Dosage: 10 MG
     Route: 066
  4. IRON [Suspect]
     Active Substance: IRON
     Indication: Product used for unknown indication
     Dosage: UNK
     Route: 065
  5. SACUBITRIL [Interacting]
     Active Substance: SACUBITRIL
     Indication: Cardiac failure
     Dosage: 24 MG, QD
     Route: 065
     Dates: start: 202112
  6. DAPAGLIFLOZIN [Interacting]
     Active Substance: DAPAGLIFLOZIN
     Indication: Cardiac failure
     Dosage: 10 MG, QD
     Route: 065
     Dates: start: 202112
  7. ATORVASTATIN [Interacting]
     Active Substance: ATORVASTATIN
     Indication: Cardiac failure
     Dosage: 20 MG, QD
     Route: 065
     Dates: start: 202112
  8. ATORVASTATIN [Interacting]
     Active Substance: ATORVASTATIN
     Indication: Myocardial infarction
  9. EPLERENONE [Interacting]
     Active Substance: EPLERENONE
     Indication: Cardiac failure
     Dosage: 25 MG, QD
     Route: 065
     Dates: start: 202112
  10. EPLERENONE [Interacting]
     Active Substance: EPLERENONE
     Indication: Myocardial infarction
     Dosage: 50 MG
     Route: 065
  11. ASPIRIN [Interacting]
     Active Substance: ASPIRIN
     Indication: Cardiac failure
     Dosage: 75 MG, QD
     Route: 065
     Dates: start: 202112
  12. ASPIRIN [Interacting]
     Active Substance: ASPIRIN
     Indication: Myocardial infarction
  13. INDAPAMIDE [Suspect]
     Active Substance: INDAPAMIDE
     Indication: Myocardial infarction
     Dosage: 1.5 MG
     Route: 065
  14. PERINDOPRIL [Suspect]
     Active Substance: PERINDOPRIL
     Indication: Myocardial infarction
     Dosage: 10 MG
     Route: 065
  15. CARVEDILOL [Suspect]
     Active Substance: CARVEDILOL
     Indication: Myocardial infarction
     Dosage: 25 MG
     Route: 065
  16. RAMIPRIL [Concomitant]
     Active Substance: RAMIPRIL
     Indication: Product used for unknown indication
     Dosage: 2.5 MG, QD
     Route: 065
  17. SODIUM CHLORIDE [Concomitant]
     Active Substance: SODIUM CHLORIDE
     Indication: Cardiac failure
     Dosage: 500 ML
     Route: 065
  18. FUROSEMIDE [Concomitant]
     Active Substance: FUROSEMIDE
     Indication: Cardiac failure
     Dosage: 20 MG, QD
     Route: 065

REACTIONS (16)
  - Hyperkalaemia [Recovered/Resolved]
  - Cardiac failure chronic [Recovered/Resolved]
  - Renal impairment [Recovered/Resolved]
  - Pulmonary oedema [Recovered/Resolved]
  - Blood urea increased [Recovering/Resolving]
  - Blood creatinine increased [Recovering/Resolving]
  - Glomerular filtration rate increased [Recovering/Resolving]
  - Asthenia [Recovered/Resolved]
  - Blood uric acid increased [Recovered/Resolved]
  - Condition aggravated [Unknown]
  - Oedema peripheral [Recovered/Resolved]
  - Creatinine urine increased [Recovered/Resolved]
  - Dyspnoea [Recovered/Resolved]
  - Drug interaction [Unknown]
  - Oedema [Recovered/Resolved]
  - Drug ineffective [Recovering/Resolving]

NARRATIVE: CASE EVENT DATE: 20211201
